FAERS Safety Report 17778855 (Version 2)
Quarter: 2020Q2

REPORT INFORMATION
  Report Type: Report from Study
  Country: NL (occurrence: NL)
  Receive Date: 20200514
  Receipt Date: 20200621
  Transmission Date: 20200714
  Serious: Yes (Death, Other)
  Sender: FDA-Public Use
  Company Number: NL-BEH-2020117134

PATIENT

DRUGS (1)
  1. PROTHROMBIN COMPLEX CONCENTRATE NOS [Suspect]
     Active Substance: COAGULATION FACTOR IX HUMAN\COAGULATION FACTOR VII HUMAN\COAGULATION FACTOR X HUMAN\PROTHROMBIN
     Indication: PROCOAGULANT THERAPY
     Dosage: 50 INTERNATIONAL UNIT/KILOGRAM
     Route: 065

REACTIONS (3)
  - Product use in unapproved indication [Unknown]
  - Ischaemic stroke [Fatal]
  - No adverse event [Unknown]
